FAERS Safety Report 10518257 (Version 1)
Quarter: 2014Q4

REPORT INFORMATION
  Report Type: Spontaneous
  Country: US (occurrence: None)
  Receive Date: 20141014
  Receipt Date: 20141014
  Transmission Date: 20150528
  Serious: No
  Sender: FDA-Public Use
  Company Number: None

PATIENT
  Age: 73 Year
  Sex: Female

DRUGS (2)
  1. AFINITOR [Suspect]
     Active Substance: EVEROLIMUS
     Indication: NEOPLASM MALIGNANT
     Route: 048
     Dates: start: 20140711
  2. CAPECITABINE 500MG TEVA PHARMACEUTICALS [Suspect]
     Active Substance: CAPECITABINE
     Indication: NEOPLASM MALIGNANT
     Dosage: 1000MG ORAL BID ONE WEEK ON, ONE WEEK OFF
     Route: 048
     Dates: start: 20140711

REACTIONS (4)
  - Skin fissures [None]
  - Blister [None]
  - Diarrhoea [None]
  - Stomatitis [None]

NARRATIVE: CASE EVENT DATE: 20141006
